FAERS Safety Report 10052180 (Version 2)
Quarter: 2014Q2

REPORT INFORMATION
  Report Type: Spontaneous
  Country: FR (occurrence: FR)
  Receive Date: 20140402
  Receipt Date: 20140418
  Transmission Date: 20141212
  Serious: Yes (Other)
  Sender: FDA-Public Use
  Company Number: FR-AMGEN-FRASP2014021617

PATIENT
  Sex: Male

DRUGS (4)
  1. NEULASTA [Suspect]
     Indication: PRODUCT USED FOR UNKNOWN INDICATION
     Dosage: UNK
     Route: 065
  2. NPLATE [Suspect]
     Indication: PRODUCT USED FOR UNKNOWN INDICATION
     Dosage: UNK
     Route: 065
  3. CISPLATINE [Concomitant]
     Dosage: UNK
  4. GEMZAR [Concomitant]
     Dosage: UNK

REACTIONS (3)
  - Toxic skin eruption [Unknown]
  - Rash generalised [Recovering/Resolving]
  - Neutropenia [Recovering/Resolving]
